FAERS Safety Report 21614305 (Version 2)
Quarter: 2022Q4

REPORT INFORMATION
  Report Type: Spontaneous
  Country: US (occurrence: US)
  Receive Date: 20221118
  Receipt Date: 20221123
  Transmission Date: 20230113
  Serious: Yes (Other)
  Sender: FDA-Public Use
  Company Number: US-MALLINCKRODT-T202205042

PATIENT
  Sex: Female

DRUGS (3)
  1. H.P. ACTHAR [Suspect]
     Active Substance: CORTICOTROPIN
     Indication: Epilepsy
     Dosage: 80 UNITS (1ML) TWICE A WEEK
     Route: 058
     Dates: start: 202209
  2. H.P. ACTHAR [Suspect]
     Active Substance: CORTICOTROPIN
     Indication: Sympathetic ophthalmia
  3. CYCLOSPORINE [Concomitant]
     Active Substance: CYCLOSPORINE
     Indication: Product used for unknown indication
     Dosage: UNK
     Route: 065

REACTIONS (13)
  - Homicidal ideation [Unknown]
  - Neoplasm [Unknown]
  - Anger [Unknown]
  - Contusion [Unknown]
  - Tongue discomfort [Unknown]
  - Amnesia [Unknown]
  - Pain in extremity [Not Recovered/Not Resolved]
  - Gastritis [Not Recovered/Not Resolved]
  - Abdominal distension [Not Recovered/Not Resolved]
  - Mood altered [Not Recovered/Not Resolved]
  - Insomnia [Not Recovered/Not Resolved]
  - Injection site discolouration [Unknown]
  - Irritability [Unknown]

NARRATIVE: CASE EVENT DATE: 20220101
